FAERS Safety Report 21547908 (Version 1)
Quarter: 2022Q4

REPORT INFORMATION
  Report Type: Spontaneous
  Country: US (occurrence: US)
  Receive Date: 20221103
  Receipt Date: 20221103
  Transmission Date: 20230112
  Serious: No
  Sender: FDA-Public Use
  Company Number: US-ELI_LILLY_AND_COMPANY-US202210001908

PATIENT
  Sex: Female

DRUGS (1)
  1. BEBTELOVIMAB [Suspect]
     Active Substance: BEBTELOVIMAB
     Indication: COVID-19
     Dosage: 175 MG, UNKNOWN
     Route: 065
     Dates: start: 20220725, end: 20220725

REACTIONS (4)
  - Genital swelling [Unknown]
  - Skin necrosis [Unknown]
  - Wound [Unknown]
  - Arthropod bite [Unknown]
